FAERS Safety Report 19812504 (Version 1)
Quarter: 2021Q3

REPORT INFORMATION
  Report Type: Spontaneous
  Country: FR (occurrence: FR)
  Receive Date: 20210910
  Receipt Date: 20210910
  Transmission Date: 20211014
  Serious: Yes (Other)
  Sender: FDA-Public Use
  Company Number: FR-TEVA-2021-FR-1950351

PATIENT
  Age: 71 Year
  Sex: Male
  Weight: 90 kg

DRUGS (4)
  1. SIMVASTATINE [Suspect]
     Active Substance: SIMVASTATIN
     Indication: HYPERCHOLESTEROLAEMIA
     Dosage: 10 MILLIGRAM DAILY; IN THE EVENING
     Route: 048
     Dates: start: 202101
  2. LOSARTAN POTASSIQUE [Concomitant]
     Active Substance: LOSARTAN POTASSIUM
  3. ESIDREX [Concomitant]
     Active Substance: HYDROCHLOROTHIAZIDE
     Route: 048
  4. PERMIXON 160 MG, GELULE [Concomitant]
     Active Substance: HERBALS\SAW PALMETTO
     Route: 048

REACTIONS (2)
  - Myalgia [Not Recovered/Not Resolved]
  - Tendon pain [Not Recovered/Not Resolved]

NARRATIVE: CASE EVENT DATE: 20210201
